FAERS Safety Report 9921279 (Version 2)
Quarter: 2014Q2

REPORT INFORMATION
  Report Type: Spontaneous
  Country: JP (occurrence: JP)
  Receive Date: 20140225
  Receipt Date: 20140428
  Transmission Date: 20141212
  Serious: Yes (Death, Hospitalization)
  Sender: FDA-Public Use
  Company Number: JP-CELGENEUS-087-50794-14022680

PATIENT
  Age: 73 Year
  Sex: Female
  Weight: 46 kg

DRUGS (14)
  1. VIDAZA [Suspect]
     Indication: MYELODYSPLASTIC SYNDROME
     Dosage: 120 MILLIGRAM
     Route: 058
     Dates: start: 20130425
  2. VIDAZA [Suspect]
     Dosage: 120 MILLIGRAM
     Route: 058
     Dates: start: 20130530
  3. VIDAZA [Suspect]
     Dosage: 120 MILLIGRAM
     Route: 058
     Dates: start: 20130816
  4. VIDAZA [Suspect]
     Dosage: 120 MILLIGRAM
     Route: 058
     Dates: start: 20130919
  5. VIDAZA [Suspect]
     Dosage: 120 MILLIGRAM
     Route: 058
     Dates: start: 20131019
  6. VIDAZA [Suspect]
     Dosage: 120 MILLIGRAM
     Route: 058
     Dates: start: 20131227
  7. OMEPRAZOLE [Concomitant]
     Indication: PRODUCT USED FOR UNKNOWN INDICATION
     Route: 065
     Dates: start: 20131116, end: 20131121
  8. REMINARON [Concomitant]
     Indication: PRODUCT USED FOR UNKNOWN INDICATION
     Route: 065
     Dates: start: 20131118, end: 20131207
  9. MIRACLID [Concomitant]
     Indication: PRODUCT USED FOR UNKNOWN INDICATION
     Route: 065
     Dates: start: 20131118, end: 20131207
  10. RECOMODULIN [Concomitant]
     Indication: PRODUCT USED FOR UNKNOWN INDICATION
     Route: 065
     Dates: start: 20131118, end: 20131203
  11. FOY [Concomitant]
     Indication: PRODUCT USED FOR UNKNOWN INDICATION
     Route: 065
     Dates: start: 20131118, end: 20131205
  12. AMINOPHYLLINE HYDRATE [Concomitant]
     Indication: PRODUCT USED FOR UNKNOWN INDICATION
     Route: 065
     Dates: start: 20131120, end: 20131122
  13. BERIZYM [Concomitant]
     Indication: PANCREATITIS ACUTE
     Route: 065
     Dates: start: 20131205, end: 20140112
  14. PANCREATIC ENZYME COMBINE DRUG [Concomitant]
     Indication: PANCREATITIS ACUTE
     Route: 065
     Dates: start: 20131205

REACTIONS (2)
  - Subdural haemorrhage [Fatal]
  - Pancreatitis acute [Recovered/Resolved]
